FAERS Safety Report 7667048-5 (Version None)
Quarter: 2011Q3

REPORT INFORMATION
  Report Type: 
  Country: None (occurrence: None)
  Receive Date: 20110806
  Receipt Date: 20110603
  Transmission Date: 20111222
  Serious: No
  Sender: FDA-Public Use
  Company Number: US-ABBOTT-11P-163-0730457-00

PATIENT
  Sex: Male
  Weight: 113.5 kg

DRUGS (6)
  1. ZETIA [Concomitant]
     Indication: BLOOD CHOLESTEROL INCREASED
     Route: 048
  2. LOVAZA [Concomitant]
     Indication: BLOOD TRIGLYCERIDES INCREASED
     Route: 048
  3. TOPROL-XL [Concomitant]
     Indication: HYPERTENSION
     Route: 048
  4. NIASPAN [Suspect]
     Indication: BLOOD CHOLESTEROL INCREASED
     Route: 048
     Dates: start: 20100101
  5. DIOVAN [Concomitant]
     Indication: CARDIAC FAILURE
     Route: 048
  6. PLAVIX [Concomitant]
     Indication: ATRIAL FIBRILLATION
     Route: 048

REACTIONS (3)
  - ERYTHEMA [None]
  - FLUSHING [None]
  - FEELING HOT [None]
